FAERS Safety Report 14402119 (Version 1)
Quarter: 2018Q1

REPORT INFORMATION
  Report Type: Spontaneous
  Country: US (occurrence: US)
  Receive Date: 20180117
  Receipt Date: 20180117
  Transmission Date: 20180509
  Serious: No
  Sender: FDA-Public Use
  Company Number: US-STALLERGENES SAS-2040197

PATIENT
  Age: 37 Year
  Sex: Male

DRUGS (4)
  1. ORALAIR [Suspect]
     Active Substance: ANTHOXANTHUM ODORATUM POLLEN\DACTYLIS GLOMERATA POLLEN\LOLIUM PERENNE POLLEN\PHLEUM PRATENSE POLLEN\POA PRATENSIS POLLEN
     Indication: MULTIPLE ALLERGIES
     Route: 060
     Dates: start: 201602
  2. MULTIVITAMIN [Concomitant]
     Active Substance: VITAMINS
  3. VITAMIN D [Concomitant]
     Active Substance: CHOLECALCIFEROL
  4. ZYRTEC [Concomitant]
     Active Substance: CETIRIZINE HYDROCHLORIDE

REACTIONS (4)
  - Dysphagia [Not Recovered/Not Resolved]
  - Oral mucosal discolouration [Not Recovered/Not Resolved]
  - Nasal pruritus [Not Recovered/Not Resolved]
  - Throat irritation [Not Recovered/Not Resolved]

NARRATIVE: CASE EVENT DATE: 20160215
